FAERS Safety Report 22624857 (Version 1)
Quarter: 2023Q2

REPORT INFORMATION
  Report Type: Spontaneous
  Country: US (occurrence: None)
  Receive Date: 20230616
  Receipt Date: 20230616
  Transmission Date: 20230721
  Serious: Yes (Other)
  Sender: FDA-Public Use
  Company Number: None

PATIENT
  Sex: Female

DRUGS (6)
  1. SKYRIZI [Suspect]
     Active Substance: RISANKIZUMAB-RZAA
     Indication: Crohn^s disease
     Dosage: 360 MG/2.4ML SUBCUTANEOUS?? INJECT 360 MG UNDER THE SKIN (SUBCUTANEOUS INJECTION) EVERY 8 WEEKS STAR
     Route: 058
     Dates: start: 20230428
  2. COLESTIPOL [Concomitant]
     Active Substance: COLESTIPOL
  3. ATROPINE SULFATE\DIPHENOXYLATE [Concomitant]
     Active Substance: ATROPINE SULFATE\DIPHENOXYLATE
  4. KETOROLAC [Concomitant]
     Active Substance: KETOROLAC TROMETHAMINE
  5. METOPROL SUC [Concomitant]
  6. TRAMADOL HCL [Concomitant]
     Active Substance: TRAMADOL HYDROCHLORIDE

REACTIONS (2)
  - Cholecystectomy [None]
  - Loss of personal independence in daily activities [None]
